FAERS Safety Report 6360096-7 (Version None)
Quarter: 2009Q3

REPORT INFORMATION
  Report Type: 
  Country: None (occurrence: None)
  Receive Date: 20090917
  Receipt Date: 20090911
  Transmission Date: 20100115
  Serious: Yes (Other)
  Sender: FDA-Public Use
  Company Number: PHHY2009BR39224

PATIENT
  Age: 71 Year
  Sex: Male
  Weight: 74 kg

DRUGS (4)
  1. DICLOFENAC SODIUM [Suspect]
     Indication: ARTHRALGIA
  2. CODATEN [Suspect]
     Indication: ARTHRALGIA
     Route: 048
  3. PURAN T4 [Concomitant]
     Indication: THYROID DISORDER
  4. NORFLOXACIN [Concomitant]
     Dosage: 400 MG, UNK
     Dates: end: 20090911

REACTIONS (6)
  - BIOPSY [None]
  - BLOOD URIC ACID INCREASED [None]
  - PAIN [None]
  - PAIN IN EXTREMITY [None]
  - SWELLING [None]
  - THYROID DISORDER [None]
